FAERS Safety Report 13468886 (Version 2)
Quarter: 2017Q2

REPORT INFORMATION
  Report Type: Spontaneous
  Country: JP (occurrence: JP)
  Receive Date: 20170421
  Receipt Date: 20170425
  Transmission Date: 20170830
  Serious: Yes (Life-Threatening, Other)
  Sender: FDA-Public Use
  Company Number: JP-PFIZER INC-2017144660

PATIENT
  Age: 66 Year
  Sex: Male

DRUGS (1)
  1. TOVIAZ [Suspect]
     Active Substance: FESOTERODINE FUMARATE
     Indication: POLLAKIURIA
     Dosage: 4 MG, 1X/DAY
     Route: 048

REACTIONS (3)
  - Dysuria [Unknown]
  - Urinary retention [Recovering/Resolving]
  - Postrenal failure [Recovering/Resolving]

NARRATIVE: CASE EVENT DATE: 20170328
